FAERS Safety Report 4944056-6 (Version None)
Quarter: 2006Q1

REPORT INFORMATION
  Report Type: 
  Country: None (occurrence: None)
  Receive Date: 20060310
  Receipt Date: 20060306
  Transmission Date: 20060701
  Serious: Yes (Death)
  Sender: FDA-Public Use
  Company Number: A0559966A

PATIENT
  Age: 42 Year
  Sex: Female
  Weight: 56.6996 kg

DRUGS (3)
  1. PAXIL CR [Suspect]
     Indication: SOCIAL PHOBIA
     Dosage: 12.5 MG/ ORAL
     Route: 048
     Dates: start: 20031115
  2. ALPRAZOLAM [Concomitant]
  3. LORAZEPAM [Concomitant]

REACTIONS (4)
  - COMPLETED SUICIDE [None]
  - INJURY ASPHYXIATION [None]
  - INSOMNIA [None]
  - INTENTIONAL SELF-INJURY [None]
